FAERS Safety Report 8958227 (Version 2)
Quarter: 2014Q1

REPORT INFORMATION
  Report Type: Report from Study
  Country: FR (occurrence: FR)
  Receive Date: 20121211
  Receipt Date: 20140227
  Transmission Date: 20141002
  Serious: Yes (Hospitalization)
  Sender: FDA-Public Use
  Company Number: PHHY2012FR112826

PATIENT
  Age: 80 Year
  Sex: Female

DRUGS (6)
  1. ACLASTA/ZOLEDRONATE [Suspect]
     Indication: OSTEOPOROSIS
     Route: 042
     Dates: start: 201206
  2. KARDEGIC [Concomitant]
     Dates: start: 2008
  3. TAHOR [Concomitant]
     Dates: start: 2008
  4. CARDENSIEL [Concomitant]
     Dates: start: 2008
  5. APROVEL [Concomitant]
     Dosage: UNK
     Dates: start: 2008
  6. MOPRAL [Concomitant]

REACTIONS (2)
  - Intestinal obstruction [Recovered/Resolved]
  - Abdominal pain [Recovered/Resolved]
